FAERS Safety Report 16024043 (Version 1)
Quarter: 2019Q1

REPORT INFORMATION
  Report Type: Spontaneous
  Country: US (occurrence: US)
  Receive Date: 20190301
  Receipt Date: 20190301
  Transmission Date: 20190418
  Serious: Yes (Hospitalization)
  Sender: FDA-Public Use
  Company Number: US-JNJFOC-20190232440

PATIENT
  Sex: Female
  Weight: 49.44 kg

DRUGS (2)
  1. TOPAMAX [Suspect]
     Active Substance: TOPIRAMATE
     Indication: VULVOVAGINAL PAIN
     Route: 048
     Dates: start: 2005
  2. TOPIRAMATE. [Suspect]
     Active Substance: TOPIRAMATE
     Indication: VULVOVAGINAL PAIN
     Route: 048

REACTIONS (11)
  - Dry mouth [Unknown]
  - Off label use [Unknown]
  - Radiculopathy [Unknown]
  - Abnormal loss of weight [Unknown]
  - Arthritis [Unknown]
  - Arthritis [Unknown]
  - Atrophy [Not Recovered/Not Resolved]
  - Product use in unapproved indication [Unknown]
  - Treatment noncompliance [Unknown]
  - Osteoporosis [Unknown]
  - Nerve injury [Unknown]

NARRATIVE: CASE EVENT DATE: 2005
